FAERS Safety Report 11944498 (Version 1)
Quarter: 2016Q1

REPORT INFORMATION
  Report Type: Spontaneous
  Country: KR (occurrence: KR)
  Receive Date: 20160125
  Receipt Date: 20160125
  Transmission Date: 20160526
  Serious: Yes (Hospitalization)
  Sender: FDA-Public Use
  Company Number: KR-AMGEN-KORCT2016008076

PATIENT
  Age: 71 Year
  Sex: Female
  Weight: 68.4 kg

DRUGS (29)
  1. G-LASTA [Suspect]
     Active Substance: PEGFILGRASTIM
     Dosage: 6 MG, UNK
     Route: 058
     Dates: start: 20150626
  2. RITUXIMAB [Concomitant]
     Active Substance: RITUXIMAB
     Indication: NON-HODGKIN^S LYMPHOMA
     Dosage: 656.25 MG, UNK
     Route: 042
     Dates: start: 20150204, end: 20150204
  3. RITUXIMAB [Concomitant]
     Active Substance: RITUXIMAB
     Dosage: 645 MG, UNK
     Route: 042
     Dates: start: 20150625, end: 20150625
  4. CEFTIZOXIME [Concomitant]
     Active Substance: CEFTIZOXIME
     Dosage: 2 G, UNK
     Route: 042
     Dates: start: 20150407, end: 20150408
  5. RITUXIMAB [Concomitant]
     Active Substance: RITUXIMAB
     Dosage: 656.25 MG, UNK
     Route: 042
     Dates: start: 20150303, end: 20150303
  6. CYCLOPHOSPHAMIDE. [Concomitant]
     Active Substance: CYCLOPHOSPHAMIDE
     Indication: NON-HODGKIN^S LYMPHOMA
     Dosage: 984.38 MG, UNK
     Route: 042
     Dates: start: 20150204, end: 20150204
  7. CYCLOPHOSPHAMIDE. [Concomitant]
     Active Substance: CYCLOPHOSPHAMIDE
     Dosage: 961.88 MG, UNK
     Route: 042
     Dates: start: 20150401, end: 20150401
  8. PREDNISOLONE. [Concomitant]
     Active Substance: PREDNISOLONE
     Dosage: 60 MG, UNK
     Route: 048
     Dates: start: 20150303, end: 20150303
  9. PREDNISOLONE. [Concomitant]
     Active Substance: PREDNISOLONE
     Dosage: 60 MG, UNK
     Route: 048
     Dates: start: 20150625, end: 20150625
  10. GLUCOVANCE [Concomitant]
     Active Substance: GLYBURIDE\METFORMIN HYDROCHLORIDE
     Dosage: 3T, UNK
     Route: 048
  11. PREDNISOLONE. [Concomitant]
     Active Substance: PREDNISOLONE
     Indication: NON-HODGKIN^S LYMPHOMA
     Dosage: 60 MG, UNK
     Route: 048
     Dates: start: 20150204, end: 20150204
  12. CEFPODOXIME [Concomitant]
     Active Substance: CEFPODOXIME
     Dosage: 200 MG, UNK
     Route: 048
     Dates: start: 20150409, end: 20150415
  13. ROXITHROMYCIN [Concomitant]
     Active Substance: ROXITHROMYCIN
     Dosage: 300 MG, UNK
     Route: 048
     Dates: start: 20150414, end: 20150420
  14. ROXITHROMYCIN [Concomitant]
     Active Substance: ROXITHROMYCIN
     Dosage: 150 MG, UNK
     Route: 048
     Dates: start: 20150422, end: 20150505
  15. G-LASTA [Suspect]
     Active Substance: PEGFILGRASTIM
     Dosage: 6 MG, UNK
     Route: 058
     Dates: start: 20150304
  16. RITUXIMAB [Concomitant]
     Active Substance: RITUXIMAB
     Dosage: 641.25 MG, UNK
     Route: 042
     Dates: start: 20150401, end: 20150401
  17. DOXORUBICIN [Concomitant]
     Active Substance: DOXORUBICIN
     Dosage: 64.13 MG, UNK
     Route: 042
     Dates: start: 20150401, end: 20150401
  18. PREDNISOLONE. [Concomitant]
     Active Substance: PREDNISOLONE
     Dosage: 60 MG, UNK
     Route: 048
     Dates: start: 20150401, end: 20150401
  19. G-LASTA [Suspect]
     Active Substance: PEGFILGRASTIM
     Dosage: 6 MG, UNK
     Route: 058
     Dates: start: 20150402
  20. DOXORUBICIN [Concomitant]
     Active Substance: DOXORUBICIN
     Indication: NON-HODGKIN^S LYMPHOMA
     Dosage: 65.63 MG, UNK
     Route: 042
     Dates: start: 20150204, end: 20150204
  21. DOXORUBICIN [Concomitant]
     Active Substance: DOXORUBICIN
     Dosage: 64.5 MG, UNK
     Route: 042
     Dates: start: 20150625, end: 20150625
  22. VINCRISTINE [Concomitant]
     Active Substance: VINCRISTINE
     Dosage: 2 MG, UNK
     Route: 042
     Dates: start: 20150401, end: 20150401
  23. G-LASTA [Suspect]
     Active Substance: PEGFILGRASTIM
     Indication: FEBRILE NEUTROPENIA
     Dosage: 6 MG, Q3WK
     Route: 058
     Dates: start: 20150205
  24. DOXORUBICIN [Concomitant]
     Active Substance: DOXORUBICIN
     Dosage: 65.63 MG, UNK
     Route: 042
     Dates: start: 20150303, end: 20150303
  25. CYCLOPHOSPHAMIDE. [Concomitant]
     Active Substance: CYCLOPHOSPHAMIDE
     Dosage: 967.5 MG, UNK
     Route: 042
     Dates: start: 20150625, end: 20150625
  26. VINCRISTINE [Concomitant]
     Active Substance: VINCRISTINE
     Indication: NON-HODGKIN^S LYMPHOMA
     Dosage: 2 MG, UNK
     Route: 042
     Dates: start: 20150204, end: 20150204
  27. VINCRISTINE [Concomitant]
     Active Substance: VINCRISTINE
     Dosage: 2 MG, UNK
     Route: 042
     Dates: start: 20150625, end: 20150625
  28. CYCLOPHOSPHAMIDE. [Concomitant]
     Active Substance: CYCLOPHOSPHAMIDE
     Dosage: 984.38 MG, UNK
     Route: 042
     Dates: start: 20150303, end: 20150303
  29. VINCRISTINE [Concomitant]
     Active Substance: VINCRISTINE
     Dosage: 2 MG, UNK
     Route: 042
     Dates: start: 20150303, end: 20150303

REACTIONS (1)
  - Neutropenia [Recovered/Resolved]

NARRATIVE: CASE EVENT DATE: 20150702
